APPROVED DRUG PRODUCT: VYLEESI (AUTOINJECTOR)
Active Ingredient: BREMELANOTIDE ACETATE
Strength: EQ 1.75MG BASE/0.3ML (EQ 1.75MG BASE/0.3 ML)
Dosage Form/Route: SOLUTION;SUBCUTANEOUS
Application: N210557 | Product #001
Applicant: COSETTE PHARMACEUTICALS INC
Approved: Jun 21, 2019 | RLD: Yes | RS: Yes | Type: RX

PATENTS:
Patent 9352013 | Expires: Nov 5, 2033
Patent 11590209 | Expires: Apr 29, 2041
Patent 9700592 | Expires: Nov 5, 2033
Patent 10286034 | Expires: Nov 5, 2033